FAERS Safety Report 17223304 (Version 1)
Quarter: 2020Q1

REPORT INFORMATION
  Report Type: Spontaneous
  Country: DE (occurrence: DE)
  Receive Date: 20200102
  Receipt Date: 20200102
  Transmission Date: 20200409
  Serious: Yes (Hospitalization)
  Sender: FDA-Public Use
  Company Number: DE-TEVA-2019-DE-1160233

PATIENT
  Age: 71 Year
  Sex: Male

DRUGS (14)
  1. CALCIUM 500MG HEXAL [Concomitant]
     Dosage: 500 MG, 0-1-0-0
  2. COLECALCIFEROL (VITAMIN D) [Concomitant]
     Dosage: 2.000 IE, 1-0-0-0
  3. PANTOPRAZOL [Concomitant]
     Active Substance: PANTOPRAZOLE SODIUM
     Dosage: 40 MG, 1-0-0-0
  4. CARBOPLATIN. [Suspect]
     Active Substance: CARBOPLATIN
     Dosage: 120 MG, NK
     Route: 065
  5. ALLOPURINOL. [Concomitant]
     Active Substance: ALLOPURINOL
     Dosage: 100 MG, 0-1-0-0
  6. L-THYROXIN 75-1A PHARMA [Concomitant]
     Dosage: 75 ?G, 1-0-0-0
  7. TORASEMID [Concomitant]
     Active Substance: TORSEMIDE
     Dosage: 10 MG, 1-0-0-0
  8. ENTRESTO 49MG/51MG [Concomitant]
     Dosage: 49|51 MG, 1-0-0.5-0
  9. EPLERENON [Concomitant]
     Active Substance: EPLERENONE
     Dosage: 25 MG/2 TAGE, 1-0-0-0
  10. GEMCITABINE. [Suspect]
     Active Substance: GEMCITABINE
     Dosage: 1200 MG, NK
     Route: 065
  11. ACETYLSALICYLS?URE [Concomitant]
     Active Substance: ASPIRIN
     Dosage: 100 MG, 0-1-0-0
  12. METOPROLOL. [Concomitant]
     Active Substance: METOPROLOL
     Dosage: 47.5 MG, 1-0-1-0
  13. SITAGLIPTIN [Concomitant]
     Active Substance: SITAGLIPTIN
     Dosage: 50 MG, 0-1-0-0
  14. ATORVASTATIN [Concomitant]
     Active Substance: ATORVASTATIN
     Dosage: 20 MG, 0-0-1-0

REACTIONS (2)
  - Cough [Unknown]
  - Dyspnoea [Unknown]
